FAERS Safety Report 23475885 (Version 1)
Quarter: 2024Q1

REPORT INFORMATION
  Report Type: Report from Study
  Country: US (occurrence: US)
  Receive Date: 20240204
  Receipt Date: 20240204
  Transmission Date: 20240409
  Serious: No
  Sender: FDA-Public Use
  Company Number: US-EXELIXIS-CABO-23061155

PATIENT
  Sex: Male

DRUGS (8)
  1. CABOMETYX [Suspect]
     Active Substance: CABOZANTINIB S-MALATE
     Indication: Malignant connective tissue neoplasm
     Dosage: 40 MG, QD
  2. CABOMETYX [Suspect]
     Active Substance: CABOZANTINIB S-MALATE
     Indication: Soft tissue sarcoma
  3. CABOMETYX [Suspect]
     Active Substance: CABOZANTINIB S-MALATE
     Indication: Sarcoma
  4. METHADONE [Concomitant]
     Active Substance: METHADONE HYDROCHLORIDE
  5. CELEBREX [Concomitant]
     Active Substance: CELECOXIB
  6. Dulcolax [Concomitant]
  7. DILAUDID [Concomitant]
     Active Substance: HYDROMORPHONE HYDROCHLORIDE
  8. LACTULOSE [Concomitant]
     Active Substance: LACTULOSE

REACTIONS (15)
  - Gastric dilatation [Unknown]
  - Coccydynia [Unknown]
  - Skin lesion [Unknown]
  - Skin disorder [Recovered/Resolved]
  - Abdominal pain upper [Unknown]
  - Dyspnoea exertional [Not Recovered/Not Resolved]
  - Decreased appetite [Recovering/Resolving]
  - Nausea [Recovering/Resolving]
  - Gastrointestinal motility disorder [Not Recovered/Not Resolved]
  - Taste disorder [Unknown]
  - Stomatitis [Unknown]
  - Blood pressure increased [Recovering/Resolving]
  - Weight decreased [Unknown]
  - Malignant neoplasm progression [Unknown]
  - Off label use [Unknown]
